FAERS Safety Report 8354020-5 (Version None)
Quarter: 2012Q2

REPORT INFORMATION
  Report Type: 
  Country: None (occurrence: None)
  Receive Date: 20120511
  Receipt Date: 20120504
  Transmission Date: 20120825
  Serious: Yes (Hospitalization)
  Sender: FDA-Public Use
  Company Number: FR-UCBSA-056894

PATIENT
  Age: 79 Year
  Sex: Female
  Weight: 51.7 kg

DRUGS (10)
  1. VIMPAT [Suspect]
     Dosage: 100 MG OR 150 MG ALTERNATIVELY
  2. NEXIUM [Concomitant]
     Dosage: DAILY DOSE : 20 MG
  3. CLONAZEPAM [Concomitant]
     Dosage: 4 DROPS DAILY
  4. LAMICTAL [Concomitant]
  5. PERINDOPRIL ERBUMINE [Concomitant]
     Dosage: DAILY DOSE : 5 MG
  6. VIMPAT [Suspect]
     Indication: EPILEPSY
     Dosage: 200 TO 300 MG DAILY
  7. BISOPROLOL FUMARATE [Concomitant]
  8. LAMICTAL [Concomitant]
     Dosage: DAILY DOSE : 250 MG
  9. CLONAZEPAM [Concomitant]
     Dosage: 3 DROPS DAILY
  10. CRESTOR [Concomitant]
     Dosage: DAILY DOSE : 10 MG

REACTIONS (12)
  - FALL [None]
  - BALANCE DISORDER [None]
  - LOSS OF CONSCIOUSNESS [None]
  - FOREIGN BODY [None]
  - CRANIOCEREBRAL INJURY [None]
  - DIZZINESS [None]
  - VITAMIN B12 DEFICIENCY [None]
  - CEREBELLAR SYNDROME [None]
  - SOMNOLENCE [None]
  - MEMORY IMPAIRMENT [None]
  - MALAISE [None]
  - DIPLOPIA [None]
